FAERS Safety Report 13065271 (Version 1)
Quarter: 2016Q4

REPORT INFORMATION
  Report Type: Report from Study
  Country: JP (occurrence: JP)
  Receive Date: 20161227
  Receipt Date: 20161227
  Transmission Date: 20170207
  Serious: Yes (Other)
  Sender: FDA-Public Use
  Company Number: JP-TEVA-722362ISR

PATIENT
  Age: 38 Year
  Sex: Female

DRUGS (3)
  1. LUTEUM VAGINAL SUPPOSITORY 400MG [Suspect]
     Active Substance: PROGESTERONE
     Indication: HORMONE REPLACEMENT THERAPY
     Dosage: 800 MILLIGRAM DAILY;
     Route: 067
     Dates: start: 20160919, end: 20161113
  2. PREDONINE [Concomitant]
     Active Substance: PREDNISOLONE\PREDNISOLONE ACETATE\PREDNISOLONE SODIUM SUCCINATE
     Dosage: 10 MILLIGRAM DAILY;
     Route: 048
     Dates: start: 20160919, end: 20160925
  3. ESTRANA [Concomitant]
     Active Substance: ESTRADIOL
     Indication: HORMONE REPLACEMENT THERAPY
     Dosage: 2.16 MILLIGRAM DAILY;
     Route: 062
     Dates: start: 20160904, end: 20161106

REACTIONS (2)
  - Genital haemorrhage [Recovering/Resolving]
  - Uterine haematoma [Recovering/Resolving]

NARRATIVE: CASE EVENT DATE: 20161017
